FAERS Safety Report 5632647-9 (Version None)
Quarter: 2008Q1

REPORT INFORMATION
  Report Type: 
  Country: None (occurrence: None)
  Receive Date: 20080220
  Receipt Date: 20080212
  Transmission Date: 20080703
  Serious: Yes (Death)
  Sender: FDA-Public Use
  Company Number: JP-GENENTECH-252660

PATIENT
  Age: 76 Year
  Sex: Female
  Weight: 44.3 kg

DRUGS (10)
  1. MABTHERA [Suspect]
     Indication: NON-HODGKIN'S LYMPHOMA
     Dosage: 530 MG, UNK
     Dates: start: 20061113
  2. MABTHERA [Suspect]
     Dosage: 510 MG, UNK
     Dates: start: 20061226
  3. IFOSFAMIDE [Concomitant]
     Indication: NON-HODGKIN'S LYMPHOMA
     Dosage: 1278 MG, UNK
     Route: 042
     Dates: start: 20061128, end: 20061202
  4. IFOSFAMIDE [Concomitant]
     Dosage: 924 MG, UNK
     Route: 042
     Dates: start: 20061227
  5. CISPLATIN [Concomitant]
     Indication: NON-HODGKIN'S LYMPHOMA
     Dosage: 28 MG, UNK
     Route: 042
     Dates: start: 20061128, end: 20061202
  6. CISPLATIN [Concomitant]
     Dosage: 20 MG, UNK
     Route: 042
     Dates: start: 20061227
  7. ETOPOSIDE [Concomitant]
     Indication: NON-HODGKIN'S LYMPHOMA
     Dosage: 60 MG/M2, UNK
     Route: 042
     Dates: start: 20061128, end: 20061202
  8. ETOPOSIDE [Concomitant]
     Dosage: 61 MG, UNK
     Route: 042
     Dates: start: 20061227
  9. MANNITOL [Concomitant]
     Indication: NON-HODGKIN'S LYMPHOMA
  10. METHOTREXATE [Concomitant]
     Indication: DRUG USE FOR UNKNOWN INDICATION
     Dosage: 50 UNK, X3
     Dates: start: 20060927, end: 20071025

REACTIONS (5)
  - PLATELET COUNT DECREASED [None]
  - PNEUMONIA [None]
  - SEPTIC SHOCK [None]
  - URINARY TRACT INFECTION [None]
  - WHITE BLOOD CELL COUNT DECREASED [None]
